FAERS Safety Report 10997716 (Version 1)
Quarter: 2015Q2

REPORT INFORMATION
  Report Type: Spontaneous
  Country: US (occurrence: None)
  Receive Date: 20150406
  Receipt Date: 20150406
  Transmission Date: 20150821
  Serious: Yes (Other)
  Sender: FDA-Public Use
  Company Number: 2015SA031044

PATIENT
  Age: 51 Year
  Sex: Female

DRUGS (14)
  1. OXYCODONE [Concomitant]
     Active Substance: OXYCODONE
  2. AVONEX [Concomitant]
     Active Substance: INTERFERON BETA-1A
  3. DOCUSATE [Concomitant]
     Active Substance: DOCUSATE
  4. SENNA [Concomitant]
     Active Substance: SENNA LEAF\SENNOSIDES\SENNOSIDES A AND B
  5. OMEPRAZOLE. [Concomitant]
     Active Substance: OMEPRAZOLE
  6. TERIFLUNOMIDE [Suspect]
     Active Substance: TERIFLUNOMIDE
     Indication: RELAPSING-REMITTING MULTIPLE SCLEROSIS
     Dosage: 1 UNIT
     Route: 048
     Dates: start: 20130808, end: 20140708
  7. ERGOCALCIFEROL. [Concomitant]
     Active Substance: ERGOCALCIFEROL
  8. HYDROXYZINE HYDROCHLORIDE. [Concomitant]
     Active Substance: HYDROXYZINE HYDROCHLORIDE
  9. PANTOPRAZOLE [Concomitant]
     Active Substance: PANTOPRAZOLE SODIUM
  10. BACLOFEN. [Concomitant]
     Active Substance: BACLOFEN
  11. VERAPAMIL [Concomitant]
     Active Substance: VERAPAMIL HYDROCHLORIDE
  12. SIMETHICONE [Concomitant]
     Active Substance: DIMETHICONE\SILICON DIOXIDE\SIMETHICONE
  13. LIDOCAINE. [Concomitant]
     Active Substance: LIDOCAINE
  14. MIRALAX [Concomitant]
     Active Substance: POLYETHYLENE GLYCOL 3350

REACTIONS (7)
  - Pneumonia [None]
  - Joint range of motion decreased [None]
  - Upper respiratory tract infection [None]
  - Asthma [None]
  - Night sweats [None]
  - Myalgia [None]
  - Respiratory distress [None]

NARRATIVE: CASE EVENT DATE: 20130828
